FAERS Safety Report 10639222 (Version 3)
Quarter: 2015Q1

REPORT INFORMATION
  Report Type: Spontaneous
  Country: US (occurrence: US)
  Receive Date: 20141208
  Receipt Date: 20150210
  Transmission Date: 20150720
  Serious: Yes (Death, Hospitalization, Other)
  Sender: FDA-Public Use
  Company Number: US-GILEAD-2014-0125852

PATIENT
  Age: 75 Year
  Sex: Male

DRUGS (2)
  1. LETAIRIS [Suspect]
     Active Substance: AMBRISENTAN
     Indication: PULMONARY HYPERTENSION
     Dosage: 10 MG, QD
     Route: 065
     Dates: start: 20130215
  2. ADCIRCA [Concomitant]
     Active Substance: TADALAFIL

REACTIONS (6)
  - Death [Fatal]
  - Cardiac failure congestive [Unknown]
  - Dyspnoea [Unknown]
  - Pericardial effusion [Unknown]
  - Pleural effusion [Unknown]
  - Cough [Unknown]

NARRATIVE: CASE EVENT DATE: 20141210
